FAERS Safety Report 9335343 (Version 1)
Quarter: 2013Q2

REPORT INFORMATION
  Report Type: Spontaneous
  Country: CH (occurrence: CH)
  Receive Date: 20130606
  Receipt Date: 20130606
  Transmission Date: 20140414
  Serious: Yes (Death)
  Sender: FDA-Public Use
  Company Number: CH-ACCORD-017895

PATIENT
  Sex: 0

DRUGS (6)
  1. ETOPOSIDE [Suspect]
     Indication: HODGKIN^S DISEASE
  2. PREDNISONE [Suspect]
     Indication: HODGKIN^S DISEASE
  3. BLEOMYCIN [Suspect]
     Indication: HODGKIN^S DISEASE
  4. CYCLOPHOSPHAMIDE [Suspect]
     Indication: HODGKIN^S DISEASE
  5. DOXORUBICIN [Suspect]
     Indication: HODGKIN^S DISEASE
  6. PROCARBAZINE [Suspect]
     Indication: HODGKIN^S DISEASE

REACTIONS (3)
  - Myelodysplastic syndrome [Fatal]
  - Off label use [Unknown]
  - Drug ineffective [Unknown]
